FAERS Safety Report 9798066 (Version 2)
Quarter: 2014Q1

REPORT INFORMATION
  Report Type: Spontaneous
  Country: US (occurrence: US)
  Receive Date: 20140106
  Receipt Date: 20140116
  Transmission Date: 20141002
  Serious: Yes (Death, Life-Threatening, Hospitalization, Other)
  Sender: FDA-Public Use
  Company Number: US-009507513-1401USA000662

PATIENT
  Sex: Male
  Weight: 113.38 kg

DRUGS (1)
  1. JANUMET [Suspect]
     Indication: TYPE 2 DIABETES MELLITUS
     Dosage: 50MG-1000MG
     Route: 048
     Dates: start: 20080417, end: 20091004

REACTIONS (26)
  - Adenocarcinoma pancreas [Fatal]
  - Pancreatic carcinoma metastatic [Fatal]
  - Duodenal ulcer [Unknown]
  - Adenocarcinoma gastric [Fatal]
  - Radiotherapy [Unknown]
  - Gastrooesophageal reflux disease [Unknown]
  - Gastric ulcer [Unknown]
  - Helicobacter infection [Unknown]
  - Transfusion [Unknown]
  - Gastroenterostomy [Unknown]
  - Portal vein thrombosis [Unknown]
  - Gastrointestinal haemorrhage [Unknown]
  - Dehydration [Unknown]
  - Shock [Unknown]
  - Hepatic lesion [Unknown]
  - Splenomegaly [Unknown]
  - Hepatic cirrhosis [Unknown]
  - Thrombocytopenia [Unknown]
  - Deep vein thrombosis [Unknown]
  - Anaemia [Unknown]
  - Fall [Unknown]
  - Hypercoagulation [Unknown]
  - Pancytopenia [Unknown]
  - Hypothermia [Unknown]
  - Hypotension [Unknown]
  - Candida infection [Unknown]
